FAERS Safety Report 22392126 (Version 1)
Quarter: 2023Q2

REPORT INFORMATION
  Report Type: Spontaneous
  Country: US (occurrence: US)
  Receive Date: 20230601
  Receipt Date: 20230601
  Transmission Date: 20230722
  Serious: No
  Sender: FDA-Public Use
  Company Number: US-ELI_LILLY_AND_COMPANY-US202305017730

PATIENT
  Sex: Female

DRUGS (1)
  1. MOUNJARO [Suspect]
     Active Substance: TIRZEPATIDE
     Indication: Weight abnormal
     Dosage: 2.5 MG, UNKNOWN
     Route: 058

REACTIONS (4)
  - Migraine [Unknown]
  - Muscle twitching [Unknown]
  - Insomnia [Unknown]
  - Off label use [Unknown]
